FAERS Safety Report 7021322-4 (Version None)
Quarter: 2010Q3

REPORT INFORMATION
  Report Type: 
  Country: None (occurrence: None)
  Receive Date: 20100929
  Receipt Date: 20100920
  Transmission Date: 20110219
  Serious: Yes (Death)
  Sender: FDA-Public Use
  Company Number: US-PFIZER INC-2010119875

PATIENT
  Sex: Male

DRUGS (7)
  1. TIKOSYN [Suspect]
     Indication: ATRIAL FIBRILLATION
     Dosage: 250 MCG, 2X/DAY
     Dates: start: 20100903
  2. LISINOPRIL [Concomitant]
     Dosage: 80 MG, UNK
  3. LOVASTATIN [Concomitant]
     Dosage: 20 MG, UNK
  4. ACETYLSALICYLIC ACID [Concomitant]
     Dosage: 81 MG, UNK
  5. WARFARIN SODIUM [Concomitant]
     Dosage: 5 MG, 2X/WEEK
  6. WARFARIN SODIUM [Concomitant]
     Dosage: 2.5 MG, UNK
  7. COREG [Concomitant]
     Dosage: 6.25 MG, 2X/DAY

REACTIONS (1)
  - CARDIAC ARREST [None]
